FAERS Safety Report 9956625 (Version 2)
Quarter: 2014Q1

REPORT INFORMATION
  Report Type: Report from Study
  Country: US (occurrence: US)
  Receive Date: 20140304
  Receipt Date: 20140304
  Transmission Date: 20141002
  Serious: No
  Sender: FDA-Public Use
  Company Number: US-ABBVIE-13P-163-1087933-00

PATIENT
  Sex: Female
  Weight: 55.39 kg

DRUGS (4)
  1. HUMIRA [Suspect]
     Indication: PRODUCT USED FOR UNKNOWN INDICATION
     Dosage: ONE DOSE
     Dates: start: 2011, end: 2011
  2. HUMIRA [Suspect]
     Dosage: ONE DOSE
  3. HUMIRA [Suspect]
  4. HYDROXYZINE [Concomitant]
     Indication: PRURITUS

REACTIONS (6)
  - Injection site swelling [Unknown]
  - Injection site erythema [Unknown]
  - Injection site bruising [Unknown]
  - Injection site nodule [Not Recovered/Not Resolved]
  - Contusion [Not Recovered/Not Resolved]
  - Pain [Not Recovered/Not Resolved]
